FAERS Safety Report 5135989-9 (Version None)
Quarter: 2006Q4

REPORT INFORMATION
  Report Type: 
  Country: None (occurrence: None)
  Receive Date: 20061020
  Receipt Date: 20061009
  Transmission Date: 20070319
  Serious: Yes (Death)
  Sender: FDA-Public Use
  Company Number: 2006124454

PATIENT
  Age: 68 Year
  Sex: Male

DRUGS (6)
  1. ALDACTONE [Suspect]
  2. MORPHINE SULFATE [Suspect]
     Dosage: 100 MG (FREQUENCY: DAILY), ORAL
     Route: 048
  3. INHALED HUMAN INSULIN (INHALED HUMAN INSULIN) [Suspect]
  4. LORAZEPAM [Suspect]
     Dosage: 1 MG (FREQUENCY: DAILY), ORAL
     Route: 048
  5. BAMBUTEROL (BAMBUTEROL) [Suspect]
  6. VALSARTAN [Suspect]

REACTIONS (4)
  - BLOOD GLUCOSE DECREASED [None]
  - DIABETES MELLITUS INADEQUATE CONTROL [None]
  - METASTATIC NEOPLASM [None]
  - SUDDEN DEATH [None]
